FAERS Safety Report 14291143 (Version 1)
Quarter: 2017Q4

REPORT INFORMATION
  Report Type: Spontaneous
  Country: US (occurrence: US)
  Receive Date: 20171215
  Receipt Date: 20171215
  Transmission Date: 20180321
  Serious: Yes (Other)
  Sender: FDA-Public Use
  Company Number: US-PFIZER INC-2017533355

PATIENT
  Age: 4 Day
  Sex: Female

DRUGS (2)
  1. SILDENAFIL CITRATE. [Suspect]
     Active Substance: SILDENAFIL CITRATE
     Indication: RESPIRATORY FAILURE
     Dosage: UNK
     Route: 048
     Dates: start: 20170630
  2. NITRIC OXIDE. [Suspect]
     Active Substance: NITRIC OXIDE
     Indication: PERSISTENT FOETAL CIRCULATION
     Dosage: UNK
     Dates: start: 20170630

REACTIONS (4)
  - Product use in unapproved indication [Unknown]
  - Ascites [Recovering/Resolving]
  - Product use issue [Unknown]
  - C-reactive protein increased [Recovered/Resolved]

NARRATIVE: CASE EVENT DATE: 20170630
